FAERS Safety Report 6105666-6 (Version None)
Quarter: 2009Q1

REPORT INFORMATION
  Report Type: 
  Country: None (occurrence: None)
  Receive Date: 20090227
  Receipt Date: 20080930
  Transmission Date: 20090719
  Serious: Yes (Hospitalization, Congenital Anomaly, Other)
  Sender: FDA-Public Use
  Company Number: RB-4564-2008

PATIENT
  Sex: Female

DRUGS (3)
  1. SUBUTEX [Suspect]
     Indication: DRUG USE FOR UNKNOWN INDICATION
     Dosage: 20 MG TRANSPLACENTAL, 20 MG TRANSMAMMARY
     Route: 064
     Dates: start: 20080605, end: 20080915
  2. SUBUTEX [Suspect]
     Indication: DRUG USE FOR UNKNOWN INDICATION
     Dosage: 20 MG TRANSPLACENTAL, 20 MG TRANSMAMMARY
     Route: 064
     Dates: start: 20080915
  3. EFFEXOR XR [Suspect]
     Indication: DRUG USE FOR UNKNOWN INDICATION
     Dosage: 150 MG QD TRANSPLACENTAL
     Route: 064
     Dates: start: 20080605, end: 20080915

REACTIONS (6)
  - ADVERSE EVENT [None]
  - DRUG EXPOSURE DURING PREGNANCY [None]
  - DRUG EXPOSURE VIA BREAST MILK [None]
  - DRUG WITHDRAWAL SYNDROME NEONATAL [None]
  - HIP DYSPLASIA [None]
  - NO ADVERSE EVENT [None]
